FAERS Safety Report 8605613-9 (Version None)
Quarter: 2012Q3

REPORT INFORMATION
  Report Type: 
  Country: None (occurrence: None)
  Receive Date: 20120820
  Receipt Date: 20120814
  Transmission Date: 20120928
  Serious: No
  Sender: FDA-Public Use
  Company Number: US-PFIZER INC-2012199268

PATIENT
  Age: 34 Year
  Sex: Female
  Weight: 88 kg

DRUGS (2)
  1. EFFEXOR XR [Suspect]
     Indication: DEPRESSION
     Dosage: 300 MG (TWO OF 150MG), 1X/DAY
     Route: 048
     Dates: start: 19970101
  2. EFFEXOR XR [Suspect]
     Indication: ANXIETY

REACTIONS (3)
  - FEELING JITTERY [None]
  - NERVOUSNESS [None]
  - WITHDRAWAL SYNDROME [None]
